FAERS Safety Report 17723824 (Version 1)
Quarter: 2020Q2

REPORT INFORMATION
  Report Type: Spontaneous
  Country: US (occurrence: US)
  Receive Date: 20200429
  Receipt Date: 20200429
  Transmission Date: 20200714
  Serious: Yes (Other)
  Sender: FDA-Public Use
  Company Number: None

PATIENT
  Age: 78 Year
  Sex: Female
  Weight: 60.75 kg

DRUGS (12)
  1. CAPECITABINE. [Suspect]
     Active Substance: CAPECITABINE
     Indication: CARCINOID SYNDROME
     Route: 048
     Dates: start: 20200312, end: 20200429
  2. METFORMIN [Concomitant]
     Active Substance: METFORMIN HYDROCHLORIDE
  3. POTASSIUM CHLORIDE. [Concomitant]
     Active Substance: POTASSIUM CHLORIDE
  4. UROCIT-K 10 [Concomitant]
  5. TRAMADOL. [Concomitant]
     Active Substance: TRAMADOL
  6. GLIPIZIDE. [Concomitant]
     Active Substance: GLIPIZIDE
  7. SYNTHROID [Concomitant]
     Active Substance: LEVOTHYROXINE SODIUM
  8. ZOFRAN [Concomitant]
     Active Substance: ONDANSETRON HYDROCHLORIDE
  9. TEMOZOLOMIDE. [Suspect]
     Active Substance: TEMOZOLOMIDE
     Indication: CARCINOID SYNDROME
     Route: 048
     Dates: start: 20200312, end: 20200429
  10. TYLENOL [Concomitant]
     Active Substance: ACETAMINOPHEN
  11. PROCHLORPERAZINE. [Concomitant]
     Active Substance: PROCHLORPERAZINE
  12. GABAPENTIN. [Concomitant]
     Active Substance: GABAPENTIN

REACTIONS (5)
  - Therapy cessation [None]
  - Vomiting [None]
  - Malaise [None]
  - Seizure [None]
  - Incontinence [None]

NARRATIVE: CASE EVENT DATE: 20200312
